FAERS Safety Report 14682451 (Version 2)
Quarter: 2019Q3

REPORT INFORMATION
  Report Type: Report from Study
  Country: DE (occurrence: DE)
  Receive Date: 20180326
  Receipt Date: 20190916
  Transmission Date: 20191004
  Serious: Yes (Hospitalization, Other)
  Sender: FDA-Public Use
  Company Number: DE-MYLANLABS-2018M1017620

PATIENT
  Sex: Female
  Weight: 77 kg

DRUGS (8)
  1. METHOTREXATE. [Suspect]
     Active Substance: METHOTREXATE
     Indication: PRODUCT USED FOR UNKNOWN INDICATION
     Dosage: UNK
     Route: 065
     Dates: start: 2001, end: 20180114
  2. HUMIRA [Suspect]
     Active Substance: ADALIMUMAB
     Indication: PSORIATIC ARTHROPATHY
     Dosage: 40 MG, 5XW
     Route: 058
     Dates: start: 20170825, end: 20171207
  3. HUMIRA [Suspect]
     Active Substance: ADALIMUMAB
     Indication: PSORIATIC ARTHROPATHY
     Dosage: 40 MG, 14 DAY
     Route: 058
     Dates: start: 20060406, end: 201512
  4. EPLERENON BETA [Concomitant]
     Route: 048
  5. ATORVASTATIN [Concomitant]
     Active Substance: ATORVASTATIN
     Indication: PRODUCT USED FOR UNKNOWN INDICATION
     Dosage: UNK
  6. RAMIPRIL. [Concomitant]
     Active Substance: RAMIPRIL
     Indication: PRODUCT USED FOR UNKNOWN INDICATION
     Dosage: UNK
     Dates: start: 201709
  7. HUMIRA [Suspect]
     Active Substance: ADALIMUMAB
     Dosage: 40 MG, Q28D
     Route: 058
     Dates: start: 20160201, end: 20161007
  8. HUMIRA [Suspect]
     Active Substance: ADALIMUMAB
     Dosage: UNK
     Route: 058
     Dates: end: 20181216

REACTIONS (26)
  - Ventricular fibrillation [Not Recovered/Not Resolved]
  - Cardiac failure [Not Recovered/Not Resolved]
  - Fatigue [Not Recovered/Not Resolved]
  - Tension [Unknown]
  - Cardiac disorder [Unknown]
  - Cardiac flutter [Recovered/Resolved]
  - Tremor [Recovered/Resolved]
  - Loss of consciousness [Not Recovered/Not Resolved]
  - Syncope [Not Recovered/Not Resolved]
  - Gastric disorder [Not Recovered/Not Resolved]
  - Nausea [Not Recovered/Not Resolved]
  - Procedural dizziness [Not Recovered/Not Resolved]
  - Toothache [Not Recovered/Not Resolved]
  - Jaw disorder [Not Recovered/Not Resolved]
  - Sinus tachycardia [Unknown]
  - Abdominal pain upper [Not Recovered/Not Resolved]
  - Gingivitis [Not Recovered/Not Resolved]
  - Weight decreased [Recovering/Resolving]
  - Stress [Unknown]
  - Arrhythmia [Not Recovered/Not Resolved]
  - Impaired healing [Recovering/Resolving]
  - Dizziness [Not Recovered/Not Resolved]
  - Poor quality sleep [Unknown]
  - Bone disorder [Not Recovered/Not Resolved]
  - Blood pressure decreased [Recovered/Resolved]
  - Procedural hypotension [Not Recovered/Not Resolved]

NARRATIVE: CASE EVENT DATE: 20090101
